FAERS Safety Report 7262741-0 (Version None)
Quarter: 2011Q1

REPORT INFORMATION
  Report Type: 
  Country: None (occurrence: None)
  Receive Date: 20110130
  Receipt Date: 20100913
  Transmission Date: 20110831
  Serious: No
  Sender: FDA-Public Use
  Company Number: US-ABBOTT-10P-163-0670601-00

PATIENT
  Age: 41 Year
  Sex: Female

DRUGS (7)
  1. FERROUS SULFATE TAB [Concomitant]
     Indication: PRODUCT USED FOR UNKNOWN INDICATION
  2. CELEXA [Concomitant]
     Indication: DEPRESSION
     Dosage: DAILY DOSE: 20MG
  3. HUMIRA [Suspect]
     Indication: CROHN'S DISEASE
     Dates: start: 20100819
  4. PRILOSEC [Concomitant]
     Indication: PRODUCT USED FOR UNKNOWN INDICATION
     Dosage: DAILY DOSE: 20MG
  5. MESALAMINE [Concomitant]
     Indication: UNEVALUABLE EVENT
     Dosage: AT BEDTIME
  6. MULTIVITAMIN WITH EXTRA ZINC [Concomitant]
     Indication: PRODUCT USED FOR UNKNOWN INDICATION
  7. METFORMIN [Concomitant]
     Indication: PRODUCT USED FOR UNKNOWN INDICATION

REACTIONS (1)
  - INJECTION SITE HAEMATOMA [None]
